FAERS Safety Report 8147867-1 (Version None)
Quarter: 2012Q1

REPORT INFORMATION
  Report Type: 
  Country: None (occurrence: None)
  Receive Date: 20120218
  Receipt Date: 20110323
  Transmission Date: 20120608
  Serious: No
  Sender: FDA-Public Use
  Company Number: US-ALLERGAN-1104172US

PATIENT
  Age: 65 Year
  Sex: Female
  Weight: 52.154 kg

DRUGS (3)
  1. BOTOX COSMETIC [Suspect]
     Indication: SKIN WRINKLING
     Dosage: UNK
     Dates: start: 20101123, end: 20101123
  2. JUVEDERM [Concomitant]
     Indication: SKIN WRINKLING
     Dosage: UNK
     Dates: start: 20101201, end: 20101201
  3. DYSPORT [Suspect]
     Indication: SKIN WRINKLING
     Dosage: UNK
     Dates: start: 20101123, end: 20101123

REACTIONS (4)
  - EYE SWELLING [None]
  - VISUAL ACUITY REDUCED [None]
  - CUTIS LAXA [None]
  - MADAROSIS [None]
